FAERS Safety Report 9071351 (Version 1)
Quarter: 2013Q1

REPORT INFORMATION
  Report Type: Spontaneous
  Country: US (occurrence: US)
  Receive Date: 20130206
  Receipt Date: 20130206
  Transmission Date: 20140127
  Serious: No
  Sender: FDA-Public Use
  Company Number: US-ALLERGAN-1210737US

PATIENT
  Age: 72 Year
  Sex: Female

DRUGS (3)
  1. RESTASIS? [Suspect]
     Indication: PRODUCT USED FOR UNKNOWN INDICATION
     Dosage: 2 GTT, UNK
     Route: 047
  2. REFRESH OPTIVE [Concomitant]
     Indication: DRY EYE
     Route: 047
  3. OMEPRAZOLE                         /00661202/ [Concomitant]

REACTIONS (6)
  - Eyelid disorder [Recovered/Resolved]
  - Eyelids pruritus [Recovered/Resolved]
  - Eyelid sensory disorder [Recovered/Resolved]
  - Eye pruritus [Recovered/Resolved]
  - Eyelid ptosis [Recovered/Resolved]
  - Hypersensitivity [Unknown]
